FAERS Safety Report 25572243 (Version 1)
Quarter: 2025Q3

REPORT INFORMATION
  Report Type: Spontaneous
  Country: JP (occurrence: JP)
  Receive Date: 20250717
  Receipt Date: 20250717
  Transmission Date: 20251020
  Serious: Yes (Other)
  Sender: GILEAD
  Company Number: JP-GILEAD-2025-0718849

PATIENT
  Age: 82 Year
  Sex: Male

DRUGS (6)
  1. VEMLIDY [Suspect]
     Active Substance: TENOFOVIR ALAFENAMIDE FUMARATE
     Indication: Hepatitis B reactivation
     Route: 065
     Dates: start: 20240625
  2. SHAKUYAKUKANZOTO [Suspect]
     Active Substance: HERBALS
     Indication: Product used for unknown indication
     Route: 065
  3. AZILSARTAN KAMEDOXOMIL [Suspect]
     Active Substance: AZILSARTAN KAMEDOXOMIL
     Indication: Product used for unknown indication
     Route: 065
  4. NIFEDIPINE [Concomitant]
     Active Substance: NIFEDIPINE
  5. MINODRONIC ACID [Concomitant]
     Active Substance: MINODRONIC ACID
  6. ZINC [Concomitant]
     Active Substance: ZINC

REACTIONS (2)
  - Plasma cell myeloma [Unknown]
  - Renal impairment [Unknown]

NARRATIVE: CASE EVENT DATE: 20250616
